FAERS Safety Report 6107191-5 (Version None)
Quarter: 2009Q1

REPORT INFORMATION
  Report Type: 
  Country: None (occurrence: None)
  Receive Date: 20090305
  Receipt Date: 20090305
  Transmission Date: 20090719
  Serious: No
  Sender: FDA-Public Use
  Company Number: None

PATIENT
  Sex: Female
  Weight: 106.1417 kg

DRUGS (1)
  1. BUPROPION HYDROCHLORIDE [Suspect]
     Indication: AFFECTIVE DISORDER
     Dosage: 150 MG ONCE QD PO HAS TRIED SEVERAL ATTEMPTS
     Route: 048

REACTIONS (4)
  - HEADACHE [None]
  - IRRITABILITY [None]
  - MIGRAINE [None]
  - NIGHTMARE [None]
